FAERS Safety Report 11327391 (Version 1)
Quarter: 2015Q3

REPORT INFORMATION
  Report Type: Spontaneous
  Country: US (occurrence: None)
  Receive Date: 20150730
  Receipt Date: 20150730
  Transmission Date: 20151125
  Serious: No
  Sender: FDA-Public Use
  Company Number: None

PATIENT
  Age: 60 Year
  Sex: Female

DRUGS (4)
  1. PIPERACILLIN/TAZOBACTAM [Suspect]
     Active Substance: PIPERACILLIN SODIUM\TAZOBACTAM SODIUM
     Indication: INFECTION
     Route: 042
     Dates: start: 20141212, end: 20141214
  2. CONTRAST DYE [Suspect]
     Active Substance: UNSPECIFIED INGREDIENT
     Route: 042
  3. VANCOMYCIN [Concomitant]
     Active Substance: VANCOMYCIN
  4. IV CONTRAST [Concomitant]
     Active Substance: UNSPECIFIED INGREDIENT

REACTIONS (2)
  - Blood creatinine increased [None]
  - Tubulointerstitial nephritis [None]

NARRATIVE: CASE EVENT DATE: 20141212
